FAERS Safety Report 6899259-0 (Version None)
Quarter: 2010Q3

REPORT INFORMATION
  Report Type: 
  Country: None (occurrence: None)
  Receive Date: 20100802
  Receipt Date: 20080216
  Transmission Date: 20110219
  Serious: Yes (Other)
  Sender: FDA-Public Use
  Company Number: US-PFIZER INC-2008003825

PATIENT
  Sex: Female
  Weight: 64.4 kg

DRUGS (4)
  1. LYRICA [Suspect]
     Indication: POST HERPETIC NEURALGIA
     Route: 048
     Dates: start: 20071101
  2. ATACAND [Concomitant]
  3. ALL OTHER THERAPEUTIC PRODUCTS [Concomitant]
  4. ANTIBIOTICS [Concomitant]

REACTIONS (3)
  - OEDEMA PERIPHERAL [None]
  - POST HERPETIC NEURALGIA [None]
  - SKIN EXFOLIATION [None]
